FAERS Safety Report 17577604 (Version 1)
Quarter: 2020Q1

REPORT INFORMATION
  Report Type: Spontaneous
  Country: US (occurrence: US)
  Receive Date: 20200324
  Receipt Date: 20200324
  Transmission Date: 20200409
  Serious: No
  Sender: FDA-Public Use
  Company Number: US-INCYTE CORPORATION-2020IN002561

PATIENT

DRUGS (1)
  1. JAKAFI [Suspect]
     Active Substance: RUXOLITINIB
     Dosage: 10 MILLIGRAM, BID WITH OR WITHOUT FOOD
     Route: 048
     Dates: start: 20141020

REACTIONS (2)
  - Haemoglobin abnormal [Unknown]
  - Platelet count abnormal [Unknown]
